FAERS Safety Report 19735355 (Version 1)
Quarter: 2021Q3

REPORT INFORMATION
  Report Type: Report from Study
  Country: SE (occurrence: SE)
  Receive Date: 20210823
  Receipt Date: 20210823
  Transmission Date: 20211014
  Serious: Yes (Death)
  Sender: FDA-Public Use
  Company Number: SE-ALNYLAM PHARMACEUTICALS, INC.-ALN-2021-002066

PATIENT

DRUGS (1)
  1. GIVLAARI [Suspect]
     Active Substance: GIVOSIRAN SODIUM
     Indication: PORPHYRIA ACUTE
     Route: 065

REACTIONS (1)
  - Hypoxia [Fatal]
